FAERS Safety Report 14645943 (Version 2)
Quarter: 2018Q4

REPORT INFORMATION
  Report Type: Spontaneous
  Country: SE (occurrence: SE)
  Receive Date: 20180316
  Receipt Date: 20181101
  Transmission Date: 20190204
  Serious: Yes (Other)
  Sender: FDA-Public Use
  Company Number: SE-SUN PHARMACEUTICAL INDUSTRIES LTD-2018RR-166610

PATIENT
  Age: 60 Year
  Sex: Female

DRUGS (1)
  1. ALENDRONIC ACID [Suspect]
     Active Substance: ALENDRONIC ACID
     Indication: OSTEOPOROSIS
     Dosage: 70 MG, 1/WEEK
     Route: 048
     Dates: start: 2014

REACTIONS (1)
  - Osteonecrosis [Unknown]

NARRATIVE: CASE EVENT DATE: 2018
